FAERS Safety Report 16943945 (Version 3)
Quarter: 2020Q2

REPORT INFORMATION
  Report Type: Spontaneous
  Country: DE (occurrence: DE)
  Receive Date: 20191022
  Receipt Date: 20200508
  Transmission Date: 20200713
  Serious: Yes (Congenital Anomaly, Other)
  Sender: FDA-Public Use
  Company Number: DE-SUN PHARMACEUTICAL INDUSTRIES LTD-2019RR-224519

PATIENT
  Sex: Female

DRUGS (56)
  1. CEFUROXIME. [Suspect]
     Active Substance: CEFUROXIME
     Indication: PRODUCT USED FOR UNKNOWN INDICATION
     Dosage: DURING THE FIRST TRIMESTER
     Route: 064
  2. SUXAMETHONIUM [Suspect]
     Active Substance: SUCCINYLCHOLINE
     Indication: PRODUCT USED FOR UNKNOWN INDICATION
     Dosage: UNK
     Route: 064
  3. NITROGLYCERIN. [Suspect]
     Active Substance: NITROGLYCERIN
     Dosage: UNK
     Route: 064
  4. COTRIMOXAZOLE [Suspect]
     Active Substance: SULFAMETHOXAZOLE\TRIMETHOPRIM
     Route: 064
  5. BETAMETHASONE. [Suspect]
     Active Substance: BETAMETHASONE
     Route: 064
  6. NIMODIPINE. [Suspect]
     Active Substance: NIMODIPINE
     Indication: PRODUCT USED FOR UNKNOWN INDICATION
     Dosage: UNK
     Route: 064
  7. DESMOPRESSIN [Suspect]
     Active Substance: DESMOPRESSIN
     Indication: PRODUCT USED FOR UNKNOWN INDICATION
     Dosage: DURING THE FIRST TRIMESTER
     Route: 064
  8. NOREPINEPHRINE. [Suspect]
     Active Substance: NOREPINEPHRINE
     Route: 064
  9. RANITIDINE. [Suspect]
     Active Substance: RANITIDINE
     Indication: PRODUCT USED FOR UNKNOWN INDICATION
     Dosage: UNK
     Route: 064
  10. METHYLDOPA. [Suspect]
     Active Substance: METHYLDOPA
     Indication: PRODUCT USED FOR UNKNOWN INDICATION
     Dosage: UNK
     Route: 064
  11. CEFTAZIDIME. [Suspect]
     Active Substance: CEFTAZIDIME
     Indication: PRODUCT USED FOR UNKNOWN INDICATION
     Dosage: DURING THE FIRST TRIMESTER
     Route: 064
  12. REMIFENTANIL [Suspect]
     Active Substance: REMIFENTANIL
     Indication: PRODUCT USED FOR UNKNOWN INDICATION
     Dosage: UNK
     Route: 064
  13. ACCUPAQUE [Suspect]
     Active Substance: IOHEXOL
     Route: 064
  14. CEFOTAXIME [Suspect]
     Active Substance: CEFOTAXIME SODIUM
     Indication: PRODUCT USED FOR UNKNOWN INDICATION
     Dosage: DURING THE FIRST TRIMESTER
     Route: 064
  15. CLONIDINE. [Suspect]
     Active Substance: CLONIDINE
     Route: 064
  16. LORAZEPAM. [Suspect]
     Active Substance: LORAZEPAM
     Indication: PRODUCT USED FOR UNKNOWN INDICATION
     Dosage: DURING THE FIRST TRIMESTER
     Route: 064
  17. SUFENTANIL [Suspect]
     Active Substance: SUFENTANIL
     Route: 064
  18. CLONIDINE. [Suspect]
     Active Substance: CLONIDINE
     Indication: PRODUCT USED FOR UNKNOWN INDICATION
     Dosage: DURING THE FIRST TRIMESTER
     Route: 064
  19. ENOXAPARIN [Suspect]
     Active Substance: ENOXAPARIN
     Indication: PRODUCT USED FOR UNKNOWN INDICATION
     Dosage: ADDITIONAL INFO: DURING THE FIRST TRIMESTER
     Route: 064
  20. METOPROLOL. [Suspect]
     Active Substance: METOPROLOL
     Indication: HYPERTENSION
     Dosage: UNK
     Route: 064
  21. ESOMEPRAZOLE. [Suspect]
     Active Substance: ESOMEPRAZOLE MAGNESIUM
     Indication: PROPHYLAXIS AGAINST GASTROINTESTINAL ULCER
     Dosage: DURING THE FIRST TRIMESTER
     Route: 064
  22. URAPIDIL [Suspect]
     Active Substance: URAPIDIL
     Indication: PRODUCT USED FOR UNKNOWN INDICATION
     Dosage: UNK
     Route: 064
  23. METOCLOPRAMIDE. [Suspect]
     Active Substance: METOCLOPRAMIDE
     Route: 064
  24. NIFEDIPINE. [Suspect]
     Active Substance: NIFEDIPINE
     Route: 064
  25. ATRACURIUM [Suspect]
     Active Substance: ATRACURIUM
     Route: 064
  26. DESMOPRESSIN [Suspect]
     Active Substance: DESMOPRESSIN
     Route: 064
  27. METAMIZOLE [Suspect]
     Active Substance: METAMIZOLE
     Route: 064
  28. MIDAZOLAM. [Suspect]
     Active Substance: MIDAZOLAM
     Indication: PRODUCT USED FOR UNKNOWN INDICATION
     Dosage: UNK
     Route: 064
  29. LORAZEPAM. [Suspect]
     Active Substance: LORAZEPAM
     Route: 064
  30. METOCLOPRAMIDE. [Suspect]
     Active Substance: METOCLOPRAMIDE
     Indication: PRODUCT USED FOR UNKNOWN INDICATION
     Dosage: UNK
     Route: 064
  31. NIFEDIPINE. [Suspect]
     Active Substance: NIFEDIPINE
     Indication: PRODUCT USED FOR UNKNOWN INDICATION
     Dosage: UNK
     Route: 064
  32. PIRITRAMIDE [Suspect]
     Active Substance: PIRITRAMIDE
     Route: 064
  33. ENOXAPARIN [Suspect]
     Active Substance: ENOXAPARIN
     Route: 064
  34. METHYLDOPA. [Suspect]
     Active Substance: METHYLDOPA
     Route: 064
  35. REMIFENTANIL [Suspect]
     Active Substance: REMIFENTANIL
     Route: 064
  36. BETAMETHASONE. [Suspect]
     Active Substance: BETAMETHASONE
     Indication: PRODUCT USED FOR UNKNOWN INDICATION
     Dosage: DURING THE SECOND TRIMESTER
     Route: 064
  37. ATRACURIUM [Suspect]
     Active Substance: ATRACURIUM
     Indication: PRODUCT USED FOR UNKNOWN INDICATION
     Dosage: DURING THE FIRST TRIMESTER
     Route: 064
  38. PARACETAMOL [Suspect]
     Active Substance: ACETAMINOPHEN
     Indication: FOETAL EXPOSURE DURING PREGNANCY
     Dosage: 19000 MILLIGRAM, UNK
     Route: 064
  39. SIMVASTATIN. [Suspect]
     Active Substance: SIMVASTATIN
     Indication: PRODUCT USED FOR UNKNOWN INDICATION
     Dosage: UNK
     Route: 064
  40. HEPARIN SODIUM. [Suspect]
     Active Substance: HEPARIN SODIUM
     Route: 064
  41. ACCUPAQUE [Suspect]
     Active Substance: IOHEXOL
     Indication: DIAGNOSTIC PROCEDURE
     Dosage: UNK
     Route: 064
  42. DIHYDRALAZINE [Suspect]
     Active Substance: DIHYDRALAZINE
     Route: 064
  43. CEFOTAXIME [Suspect]
     Active Substance: CEFOTAXIME SODIUM
     Route: 064
  44. PROPOFOL. [Suspect]
     Active Substance: PROPOFOL
     Indication: PRODUCT USED FOR UNKNOWN INDICATION
     Dosage: UNK
     Route: 064
  45. NOREPINEPHRINE. [Suspect]
     Active Substance: NOREPINEPHRINE
     Indication: PRODUCT USED FOR UNKNOWN INDICATION
     Dosage: UNK
     Route: 064
  46. CEFTAZIDIME. [Suspect]
     Active Substance: CEFTAZIDIME
     Route: 064
  47. HEPARIN SODIUM. [Suspect]
     Active Substance: HEPARIN SODIUM
     Indication: PRODUCT USED FOR UNKNOWN INDICATION
     Dosage: DURING THE FIRST TRIMESTER
     Route: 064
  48. NITROGLYCERIN. [Suspect]
     Active Substance: NITROGLYCERIN
     Indication: PRODUCT USED FOR UNKNOWN INDICATION
     Dosage: UNK
     Route: 064
  49. COTRIMOXAZOLE [Suspect]
     Active Substance: SULFAMETHOXAZOLE\TRIMETHOPRIM
     Indication: PRODUCT USED FOR UNKNOWN INDICATION
     Dosage: DURING THE FIRST TRIMESTER
     Route: 064
  50. DIHYDRALAZINE [Suspect]
     Active Substance: DIHYDRALAZINE
     Indication: PRODUCT USED FOR UNKNOWN INDICATION
     Dosage: DURING THE FIRST TRIMESTER
     Route: 064
  51. NIMODIPINE. [Suspect]
     Active Substance: NIMODIPINE
     Route: 064
  52. PROPOFOL. [Suspect]
     Active Substance: PROPOFOL
     Route: 064
  53. SUFENTANIL [Suspect]
     Active Substance: SUFENTANIL
     Indication: PRODUCT USED FOR UNKNOWN INDICATION
     Dosage: UNK
     Route: 064
  54. METAMIZOLE [Suspect]
     Active Substance: METAMIZOLE
     Indication: PRODUCT USED FOR UNKNOWN INDICATION
     Dosage: UNK
     Route: 064
  55. IOHEXOL [Suspect]
     Active Substance: IOHEXOL
     Indication: PRODUCT USED FOR UNKNOWN INDICATION
     Dosage: DURING THE FIRST TRIMESTER
     Route: 064
  56. PIRITRAMIDE [Suspect]
     Active Substance: PIRITRAMIDE
     Indication: PRODUCT USED FOR UNKNOWN INDICATION
     Route: 064

REACTIONS (4)
  - Premature baby [Unknown]
  - Foetal exposure during pregnancy [Unknown]
  - Exposure during pregnancy [Unknown]
  - Patent ductus arteriosus [Recovered/Resolved]
